FAERS Safety Report 5532915-5 (Version None)
Quarter: 2007Q4

REPORT INFORMATION
  Report Type: 
  Country: None (occurrence: None)
  Receive Date: 20071129
  Receipt Date: 20071112
  Transmission Date: 20080405
  Serious: Yes (Hospitalization)
  Sender: FDA-Public Use
  Company Number: 2007RL000511

PATIENT
  Age: 83 Year
  Sex: Male
  Weight: 72.5755 kg

DRUGS (7)
  1. DYNACIRC [Suspect]
     Indication: BLOOD PRESSURE
     Dates: start: 20070927, end: 20071001
  2. LABETALOL HCL [Concomitant]
  3. CLONIDINE [Concomitant]
  4. NORVASC /00972401/ [Concomitant]
  5. PRAVASTATIN [Concomitant]
  6. FINASTERIDE [Concomitant]
  7. ASPIRIN [Concomitant]

REACTIONS (2)
  - CHOLELITHIASIS [None]
  - CONDITION AGGRAVATED [None]
